FAERS Safety Report 17555109 (Version 1)
Quarter: 2020Q1

REPORT INFORMATION
  Report Type: Spontaneous
  Country: PT (occurrence: PT)
  Receive Date: 20200318
  Receipt Date: 20200318
  Transmission Date: 20200409
  Serious: Yes (Other)
  Sender: FDA-Public Use
  Company Number: PT-MYLANLABS-2020M1028573

PATIENT
  Age: 35 Year
  Sex: Female
  Weight: 52 kg

DRUGS (4)
  1. RANITIDINE. [Concomitant]
     Active Substance: RANITIDINE
     Dosage: PR?-MEDICA??O
  2. PREDNISOLONE. [Concomitant]
     Active Substance: PREDNISOLONE
     Dosage: PR?-MEDICA??O
  3. PACLITAXEL. [Suspect]
     Active Substance: PACLITAXEL
     Indication: BREAST CANCER
     Dosage: 121MG DIAS 1,3 E 8. RAMS OCOR
     Route: 042
     Dates: start: 20190218
  4. DESLORATADINE. [Concomitant]
     Active Substance: DESLORATADINE
     Dosage: PR?-MEDICA??O

REACTIONS (4)
  - Feeling hot [Unknown]
  - Dyspnoea [Unknown]
  - Paraesthesia [Unknown]
  - Rash [Unknown]

NARRATIVE: CASE EVENT DATE: 20190218
